FAERS Safety Report 17024611 (Version 1)
Quarter: 2019Q4

REPORT INFORMATION
  Report Type: Spontaneous
  Country: GB (occurrence: GB)
  Receive Date: 20191113
  Receipt Date: 20191113
  Transmission Date: 20200122
  Serious: Yes (Other)
  Sender: FDA-Public Use
  Company Number: GB-DEXPHARM-20190981

PATIENT
  Age: 28 Year
  Sex: Female
  Weight: 55 kg

DRUGS (5)
  1. IBUPROFEN. [Concomitant]
     Active Substance: IBUPROFEN
  2. OMEPRAZOLE. [Suspect]
     Active Substance: OMEPRAZOLE
     Indication: DYSPEPSIA
     Route: 048
     Dates: start: 20180702
  3. IBUPROFEN LYSINE. [Concomitant]
     Active Substance: IBUPROFEN LYSINE
  4. GEDAREL [Concomitant]
  5. PARACETAMOL [Concomitant]
     Active Substance: ACETAMINOPHEN

REACTIONS (7)
  - Headache [Recovering/Resolving]
  - Hyperaesthesia [Not Recovered/Not Resolved]
  - Abdominal pain upper [Recovered/Resolved]
  - Pyrexia [Not Recovered/Not Resolved]
  - Paraesthesia [Not Recovered/Not Resolved]
  - Diarrhoea [Not Recovered/Not Resolved]
  - Dizziness [Recovered/Resolved]

NARRATIVE: CASE EVENT DATE: 20180702
